FAERS Safety Report 18223147 (Version 1)
Quarter: 2020Q3

REPORT INFORMATION
  Report Type: Spontaneous
  Country: FR (occurrence: FR)
  Receive Date: 20200902
  Receipt Date: 20200902
  Transmission Date: 20201103
  Serious: Yes (Other)
  Sender: FDA-Public Use
  Company Number: FR-JNJFOC-20200835046

PATIENT
  Age: 38 Year
  Sex: Male

DRUGS (3)
  1. GUSELKUMAB [Suspect]
     Active Substance: GUSELKUMAB
     Indication: PSORIASIS
     Dosage: 100 MG A S0 PUIS S4 PUIS TOUS LES DEUX MOIS; IN TOTAL
     Route: 058
     Dates: start: 20200310
  2. GUSELKUMAB [Suspect]
     Active Substance: GUSELKUMAB
  3. GUSELKUMAB [Suspect]
     Active Substance: GUSELKUMAB

REACTIONS (1)
  - COVID-19 [Recovered/Resolved]

NARRATIVE: CASE EVENT DATE: 202003
